FAERS Safety Report 11213084 (Version 1)
Quarter: 2015Q2

REPORT INFORMATION
  Report Type: Spontaneous
  Country: US (occurrence: None)
  Receive Date: 20150622
  Receipt Date: 20150622
  Transmission Date: 20150821
  Serious: No
  Sender: FDA-Public Use
  Company Number: None

PATIENT
  Age: 51 Year

DRUGS (1)
  1. MAGNILIFE FIBROMYALGIA RELIEF TABLETS [Suspect]
     Active Substance: HOMEOPATHICS
     Indication: FIBROMYALGIA
     Dosage: 2 PILLS TAKEN UNDER TONGUE
     Route: 060
     Dates: start: 20150618, end: 20150618

REACTIONS (2)
  - Product label issue [None]
  - Drug ineffective [None]

NARRATIVE: CASE EVENT DATE: 20150618
